FAERS Safety Report 4837596-1 (Version None)
Quarter: 2005Q4

REPORT INFORMATION
  Report Type: 
  Country: None (occurrence: None)
  Receive Date: 20051024
  Receipt Date: 20050829
  Transmission Date: 20060501
  Serious: No
  Sender: FDA-Public Use
  Company Number: 217300

PATIENT
  Age: 10 Year
  Sex: Female

DRUGS (3)
  1. XOLAIR [Suspect]
     Indication: ASTHMA
     Dates: start: 20041101
  2. ALBUTEROL [Concomitant]
  3. FLOVENT [Concomitant]

REACTIONS (1)
  - ALOPECIA [None]
